FAERS Safety Report 19157046 (Version 1)
Quarter: 2021Q2

REPORT INFORMATION
  Report Type: Report from Study
  Country: IN (occurrence: IN)
  Receive Date: 20210420
  Receipt Date: 20210420
  Transmission Date: 20210717
  Serious: Yes (Death)
  Sender: FDA-Public Use
  Company Number: PHHY2018IN136971

PATIENT
  Age: 61 Year
  Sex: Male
  Weight: 54 kg

DRUGS (4)
  1. VYMADA [Suspect]
     Active Substance: SACUBITRIL\VALSARTAN
     Indication: CARDIAC FAILURE
     Dosage: 0.5 DF, BID
     Route: 048
     Dates: start: 20181020
  2. HUMAN MIXTARD [Concomitant]
     Active Substance: INSULIN HUMAN
     Indication: DIABETES MELLITUS
     Dosage: UNK
     Route: 048
  3. VYMADA [Suspect]
     Active Substance: SACUBITRIL\VALSARTAN
     Dosage: 1 DF (100 MG), BID
     Route: 048
  4. VYMADA [Suspect]
     Active Substance: SACUBITRIL\VALSARTAN
     Indication: CARDIAC FAILURE CHRONIC
     Dosage: 1 DF, BID (100MG)
     Route: 048
     Dates: start: 2017

REACTIONS (3)
  - Cardiac arrest [Fatal]
  - Wrong technique in product usage process [Unknown]
  - Product prescribing error [Unknown]

NARRATIVE: CASE EVENT DATE: 20181020
